FAERS Safety Report 8128413-5 (Version None)
Quarter: 2012Q1

REPORT INFORMATION
  Report Type: 
  Country: None (occurrence: None)
  Receive Date: 20120210
  Receipt Date: 20120127
  Transmission Date: 20120608
  Serious: Yes (Death, Hospitalization)
  Sender: FDA-Public Use
  Company Number: KH-ROCHE-1034123

PATIENT
  Age: 25 Year
  Sex: Female

DRUGS (5)
  1. TAMIFLU [Suspect]
     Indication: PRODUCT USED FOR UNKNOWN INDICATION
  2. DOBUTAMINE HCL [Concomitant]
  3. AMIKACIN [Concomitant]
  4. UNKNOWN DRUGS [Concomitant]
  5. CEFTAZIDIM [Concomitant]

REACTIONS (3)
  - INFLUENZA [None]
  - ACUTE RESPIRATORY DISTRESS SYNDROME [None]
  - PNEUMONIA [None]
